FAERS Safety Report 7337158-0 (Version None)
Quarter: 2011Q1

REPORT INFORMATION
  Report Type: 
  Country: None (occurrence: None)
  Receive Date: 20110308
  Receipt Date: 20110302
  Transmission Date: 20110831
  Serious: No
  Sender: FDA-Public Use
  Company Number: US-PFIZER INC-2011046206

PATIENT
  Sex: Female
  Weight: 65.8 kg

DRUGS (3)
  1. FOSAMAX [Concomitant]
     Dosage: UNK
  2. NEURONTIN [Suspect]
     Indication: NEUROPATHY PERIPHERAL
     Dosage: 200 MG, 3X/DAY
     Route: 048
     Dates: start: 20101015, end: 20110302
  3. DICLOFENAC [Concomitant]
     Dosage: UNK

REACTIONS (4)
  - DYSPEPSIA [None]
  - PELVIC PAIN [None]
  - ASTHENIA [None]
  - INCONTINENCE [None]
